FAERS Safety Report 4300681-7 (Version None)
Quarter: 2004Q1

REPORT INFORMATION
  Report Type: 
  Country: None (occurrence: None)
  Receive Date: 20040218
  Receipt Date: 20040202
  Transmission Date: 20041129
  Serious: Yes (Death, Hospitalization)
  Sender: FDA-Public Use
  Company Number: JP_031202292

PATIENT
  Age: 76 Year
  Sex: Male

DRUGS (2)
  1. GEMZAR [Suspect]
     Indication: NON-SMALL CELL LUNG CANCER
     Dosage: 1200 MG/OTHER
     Route: 050
     Dates: start: 20030513, end: 20031028
  2. PREDNISOLONE [Concomitant]

REACTIONS (3)
  - CONDITION AGGRAVATED [None]
  - INTERSTITIAL LUNG DISEASE [None]
  - PNEUMONIA STAPHYLOCOCCAL [None]
